FAERS Safety Report 4534729-1 (Version None)
Quarter: 2004Q4

REPORT INFORMATION
  Report Type: 
  Country: None (occurrence: None)
  Receive Date: 20041222
  Receipt Date: 20031217
  Transmission Date: 20050328
  Serious: No
  Sender: FDA-Public Use
  Company Number: US-BRISTOL-MYERS SQUIBB COMPANY-12460952

PATIENT
  Age: 69 Year
  Sex: Male

DRUGS (7)
  1. PRAVACHOL [Suspect]
     Indication: HYPERLIPIDAEMIA
     Route: 048
     Dates: start: 19971217, end: 20030801
  2. GLUCOTROL [Concomitant]
  3. VENTOLIN [Concomitant]
  4. TOPROL-XL [Concomitant]
  5. CLARITIN-D [Concomitant]
  6. ALTACE [Concomitant]
  7. VIOXX [Concomitant]

REACTIONS (1)
  - MYOPATHY [None]
